FAERS Safety Report 16601835 (Version 3)
Quarter: 2019Q3

REPORT INFORMATION
  Report Type: Spontaneous
  Country: US (occurrence: US)
  Receive Date: 20190719
  Receipt Date: 20190802
  Transmission Date: 20191004
  Serious: Yes (Hospitalization, Other)
  Sender: FDA-Public Use
  Company Number: US-GILEAD-2019-0418824

PATIENT
  Age: 56 Year
  Sex: Male
  Weight: 83.8 kg

DRUGS (9)
  1. SERTRALINE [Concomitant]
     Active Substance: SERTRALINE HYDROCHLORIDE
  2. OMEPRAZOLE. [Concomitant]
     Active Substance: OMEPRAZOLE
  3. FLUCONAZOLE. [Concomitant]
     Active Substance: FLUCONAZOLE
  4. CIPROFLOXACIN. [Concomitant]
     Active Substance: CIPROFLOXACIN
  5. POTASSIUM CHLORIDE. [Concomitant]
     Active Substance: POTASSIUM CHLORIDE
  6. YESCARTA [Suspect]
     Active Substance: AXICABTAGENE CILOLEUCEL
     Indication: DIFFUSE LARGE B-CELL LYMPHOMA
     Dosage: UNK, ONCE
     Route: 042
     Dates: start: 20190429, end: 20190429
  7. ACYCLOVIR [ACICLOVIR] [Concomitant]
     Active Substance: ACYCLOVIR
  8. DAPSONE. [Concomitant]
     Active Substance: DAPSONE
  9. BUSPIRONE [Concomitant]
     Active Substance: BUSPIRONE HYDROCHLORIDE

REACTIONS (10)
  - Headache [Not Recovered/Not Resolved]
  - Malaise [Unknown]
  - Pyrexia [Unknown]
  - Hypoaesthesia [Not Recovered/Not Resolved]
  - B-cell lymphoma recurrent [Unknown]
  - Pain in extremity [Unknown]
  - Chest pain [Recovered/Resolved]
  - Diarrhoea [Unknown]
  - Pleural effusion [Unknown]
  - Muscular weakness [Recovered/Resolved]

NARRATIVE: CASE EVENT DATE: 20190708
